FAERS Safety Report 7699010-0 (Version None)
Quarter: 2011Q3

REPORT INFORMATION
  Report Type: 
  Country: None (occurrence: None)
  Receive Date: 20110819
  Receipt Date: 20110817
  Transmission Date: 20111222
  Serious: No
  Sender: FDA-Public Use
  Company Number: US-TEVA-297157USA

PATIENT
  Sex: Female
  Weight: 72.64 kg

DRUGS (3)
  1. BETA BLOCKER [Concomitant]
     Indication: HEART RATE INCREASED
  2. PLAN B ONE-STEP [Suspect]
     Indication: POST COITAL CONTRACEPTION
     Dosage: 1.5 MILLIGRAM;
     Route: 048
     Dates: start: 20110812, end: 20110812
  3. NORCO [Concomitant]
     Indication: BACK PAIN

REACTIONS (4)
  - FATIGUE [None]
  - MOOD ALTERED [None]
  - ACNE [None]
  - DIZZINESS [None]
